FAERS Safety Report 9298900 (Version 1)
Quarter: 2013Q2

REPORT INFORMATION
  Report Type: Spontaneous
  Country: US (occurrence: US)
  Receive Date: 20130520
  Receipt Date: 20130520
  Transmission Date: 20140414
  Serious: No
  Sender: FDA-Public Use
  Company Number: US-SANOFI-AVENTIS-2012SA052383

PATIENT
  Sex: Female

DRUGS (2)
  1. APIDRA SOLOSTAR [Suspect]
     Indication: DIABETES MELLITUS
     Dosage: DOSE: 4-6 UNITS WITH MEALS
     Route: 058
  2. SOLOSTAR [Suspect]
     Indication: DIABETES MELLITUS

REACTIONS (3)
  - Sleep disorder [Recovered/Resolved]
  - Weight increased [Recovered/Resolved]
  - Hypersensitivity [Unknown]
